FAERS Safety Report 25945480 (Version 2)
Quarter: 2025Q4

REPORT INFORMATION
  Report Type: Report from Study
  Country: US (occurrence: US)
  Receive Date: 20251021
  Receipt Date: 20251117
  Transmission Date: 20260117
  Serious: Yes (Other)
  Sender: BAYER HEALTHCARE LLC
  Company Number: US-BAYER-2025A136298

PATIENT
  Age: 69 Year
  Sex: Male

DRUGS (10)
  1. NUBEQA [Suspect]
     Active Substance: DAROLUTAMIDE
     Indication: Hormone-refractory prostate cancer
     Dosage: 600 MG, BID
     Route: 048
     Dates: start: 202507, end: 2025
  2. NUBEQA [Suspect]
     Active Substance: DAROLUTAMIDE
     Indication: Hormone-refractory prostate cancer
     Dosage: ONLY TAKING 2 TABLETS AT BEDTIME
     Route: 048
     Dates: start: 2025, end: 2025
  3. NUBEQA [Suspect]
     Active Substance: DAROLUTAMIDE
     Indication: Hormone-refractory prostate cancer
     Dosage: 600 MG, BID
     Route: 048
     Dates: start: 2025
  4. ELIQUIS [Suspect]
     Active Substance: APIXABAN
     Dosage: UNK (TAKING 3 TABS)
  5. QUETIAPINE [Suspect]
     Active Substance: QUETIAPINE
  6. ASPIRIN [Suspect]
     Active Substance: ASPIRIN
  7. ORGOVYX [Suspect]
     Active Substance: RELUGOLIX
  8. CINNAMON [Concomitant]
     Active Substance: CINNAMON
  9. HERBALS\TURMERIC [Concomitant]
     Active Substance: HERBALS\TURMERIC
  10. CAPSICUM\HERBALS [Concomitant]
     Active Substance: CAPSICUM\HERBALS

REACTIONS (3)
  - Urinary retention [Recovering/Resolving]
  - Renal impairment [Recovering/Resolving]
  - Feeling abnormal [Unknown]

NARRATIVE: CASE EVENT DATE: 20250101
